FAERS Safety Report 25113022 (Version 2)
Quarter: 2025Q1

REPORT INFORMATION
  Report Type: Spontaneous
  Country: CH (occurrence: CH)
  Receive Date: 20250324
  Receipt Date: 20250326
  Transmission Date: 20250409
  Serious: Yes (Other)
  Sender: PFIZER
  Company Number: CH-MLMSERVICE-20250313-PI443957-00140-2

PATIENT
  Age: 12 Year
  Sex: Male

DRUGS (3)
  1. VINCRISTINE SULFATE [Suspect]
     Active Substance: VINCRISTINE SULFATE
     Indication: Cardiac neoplasm malignant
  2. ETOPOSIDE [Suspect]
     Active Substance: ETOPOSIDE
     Indication: Cardiac neoplasm malignant
  3. IFOSFAMIDE [Suspect]
     Active Substance: IFOSFAMIDE
     Indication: Cardiac neoplasm malignant

REACTIONS (4)
  - Cardiotoxicity [Unknown]
  - Nephropathy toxic [Unknown]
  - Off label use [Unknown]
  - Drug effective for unapproved indication [Unknown]
